FAERS Safety Report 5468596-9 (Version None)
Quarter: 2007Q3

REPORT INFORMATION
  Report Type: 
  Country: None (occurrence: None)
  Receive Date: 20070926
  Receipt Date: 20070911
  Transmission Date: 20080115
  Serious: Yes (Hospitalization)
  Sender: FDA-Public Use
  Company Number: US-ELI_LILLY_AND_COMPANY-US200709002089

PATIENT
  Age: 54 Year
  Sex: Female

DRUGS (10)
  1. EVISTA [Suspect]
     Indication: OSTEOPOROSIS
     Dosage: 60 MG, UNK
     Dates: start: 19920101, end: 20070801
  2. PRILOSEC [Concomitant]
     Indication: GASTROOESOPHAGEAL REFLUX DISEASE
     Dosage: 40 MG, UNK
  3. COREG [Concomitant]
     Indication: BLOOD PRESSURE
  4. FLOVENT [Concomitant]
     Indication: ASTHMA
  5. ASPIRIN [Concomitant]
  6. COUMADIN [Concomitant]
     Indication: ANTICOAGULANT THERAPY
  7. PLAVIX [Concomitant]
  8. EFFEXOR [Concomitant]
     Indication: DEPRESSION
     Dosage: 100 MG, UNK
  9. LEVOXYL [Concomitant]
     Indication: HYPOTHYROIDISM
  10. DIURETICS [Concomitant]
     Indication: DIURETIC THERAPY

REACTIONS (7)
  - ASTHENIA [None]
  - BACK PAIN [None]
  - FLUID RETENTION [None]
  - MEMORY IMPAIRMENT [None]
  - POOR PERIPHERAL CIRCULATION [None]
  - THROMBOSIS [None]
  - TRANSIENT ISCHAEMIC ATTACK [None]
